FAERS Safety Report 19480068 (Version 1)
Quarter: 2021Q2

REPORT INFORMATION
  Report Type: Spontaneous
  Country: US (occurrence: US)
  Receive Date: 20210630
  Receipt Date: 20210630
  Transmission Date: 20210717
  Serious: No
  Sender: FDA-Public Use
  Company Number: US-FOUNDATIONCONSUMERHC-2021-US-000300

PATIENT
  Age: 14 Year
  Sex: Female
  Weight: 58.97 kg

DRUGS (1)
  1. AFTERA [Suspect]
     Active Substance: LEVONORGESTREL
     Indication: POST COITAL CONTRACEPTION
     Dosage: 1.5MG X 2 DOSES
     Route: 048
     Dates: start: 20201228, end: 20210101

REACTIONS (4)
  - Vaginal discharge [Not Recovered/Not Resolved]
  - Dysmenorrhoea [Recovered/Resolved]
  - Nausea [Recovered/Resolved]
  - Headache [Recovered/Resolved]

NARRATIVE: CASE EVENT DATE: 20210103
